FAERS Safety Report 7060179-2 (Version None)
Quarter: 2010Q4

REPORT INFORMATION
  Report Type: 
  Country: None (occurrence: None)
  Receive Date: 20101025
  Receipt Date: 20101021
  Transmission Date: 20110411
  Serious: Yes (Hospitalization)
  Sender: FDA-Public Use
  Company Number: US-GILEAD-2010-0032790

PATIENT
  Age: 78 Year
  Sex: Female
  Weight: 70.37 kg

DRUGS (10)
  1. LETAIRIS [Suspect]
     Indication: PULMONARY ARTERIAL HYPERTENSION
     Route: 048
  2. FUROSEMIDE [Concomitant]
  3. ASPIRIN [Concomitant]
  4. LOTREL [Concomitant]
  5. SIMVASTATIN [Concomitant]
  6. AMITRIPTYLINE HCL [Concomitant]
  7. LYRICA [Concomitant]
  8. METFORMIN [Concomitant]
  9. CELEBREX [Concomitant]
  10. SYNTHROID [Concomitant]

REACTIONS (1)
  - ADVERSE DRUG REACTION [None]
